FAERS Safety Report 7313360-9 (Version None)
Quarter: 2011Q1

REPORT INFORMATION
  Report Type: 
  Country: None (occurrence: None)
  Receive Date: 20110217
  Receipt Date: 20110217
  Transmission Date: 20110831
  Serious: Yes (Other)
  Sender: FDA-Public Use
  Company Number: None

PATIENT
  Age: 18 Year
  Sex: Female
  Weight: 70.3075 kg

DRUGS (2)
  1. CELEXA [Concomitant]
  2. ZOLPIDEM TARTRATE [Suspect]
     Indication: INSOMNIA
     Dosage: 20MG EVERY NIGHT PO
     Route: 048
     Dates: start: 20101031, end: 20110216

REACTIONS (4)
  - LOSS OF CONSCIOUSNESS [None]
  - SOMNOLENCE [None]
  - AMNESIA [None]
  - SOMNAMBULISM [None]
